FAERS Safety Report 6437988-3 (Version None)
Quarter: 2009Q4

REPORT INFORMATION
  Report Type: 
  Country: None (occurrence: None)
  Receive Date: 20091112
  Receipt Date: 20091104
  Transmission Date: 20100525
  Serious: Yes (Other)
  Sender: FDA-Public Use
  Company Number: GXKR2009GB12161

PATIENT
  Age: 63 Year
  Sex: Female
  Weight: 67 kg

DRUGS (5)
  1. CITALOPRAM HYDROBROMIDE [Suspect]
     Indication: DEPRESSION
     Dosage: 10 MG, QOD
     Route: 048
     Dates: start: 20080801, end: 20091002
  2. CITALOPRAM HYDROBROMIDE [Suspect]
     Dosage: 20 MG, UNK
     Route: 048
     Dates: start: 20010101, end: 20080801
  3. ACETYLSALICYLIC ACID [Concomitant]
     Indication: RETINAL VEIN THROMBOSIS
     Dosage: 75 MG, UNK
     Route: 048
  4. BENDROFLUAZIDE [Concomitant]
     Indication: HYPERTENSION
     Dosage: 2.5 MG, UNK
     Route: 048
  5. ESTROGENS CONJUGATED [Concomitant]
     Indication: HOT FLUSH
     Dosage: 625 UG, UNK
     Route: 048

REACTIONS (8)
  - ANXIETY [None]
  - CHILLS [None]
  - DEPRESSED MOOD [None]
  - DIZZINESS [None]
  - HEADACHE [None]
  - IRRITABILITY [None]
  - MYALGIA [None]
  - WITHDRAWAL SYNDROME [None]
